FAERS Safety Report 7650893-X (Version None)
Quarter: 2011Q3

REPORT INFORMATION
  Report Type: 
  Country: None (occurrence: None)
  Receive Date: 20110727
  Receipt Date: 20110712
  Transmission Date: 20111222
  Serious: No
  Sender: FDA-Public Use
  Company Number: TPA2011A04273

PATIENT
  Age: 56 Year
  Sex: Male

DRUGS (5)
  1. ADENURIC (FEBUXOSTAT) [Suspect]
     Dosage: 80 MG (80 MG,1 IN 1 D) ORAL
     Route: 048
     Dates: start: 20110201, end: 20110603
  2. BELOC ZOC MITE/OLD FORM(METOPROLOL SUCCINATE) [Concomitant]
  3. ATACAND PLUS 8/12.5  MG(HYDROCHLOROTHIAZIDE,CANDESARTAN CILEXETIL) [Concomitant]
  4. LEVOTHYROXINE SODIUM [Concomitant]
  5. TALSO UNO(SERENOA REPENS EXTRACT) [Concomitant]

REACTIONS (2)
  - EXTRASYSTOLES [None]
  - DEPRESSED MOOD [None]
